FAERS Safety Report 5756620-5 (Version None)
Quarter: 2008Q2

REPORT INFORMATION
  Report Type: 
  Country: None (occurrence: None)
  Receive Date: 20080603
  Receipt Date: 20080523
  Transmission Date: 20081010
  Serious: Yes (Hospitalization)
  Sender: FDA-Public Use
  Company Number: FR-BRISTOL-MYERS SQUIBB COMPANY-14211312

PATIENT
  Age: 47 Year
  Sex: Male

DRUGS (3)
  1. ENDOXAN [Suspect]
     Indication: POLYARTERITIS NODOSA
     Route: 042
     Dates: start: 20080222, end: 20080222
  2. MABTHERA [Suspect]
     Indication: POLYARTERITIS NODOSA
     Route: 042
     Dates: start: 20080222, end: 20080222
  3. CORTICOSTEROID [Concomitant]

REACTIONS (3)
  - CUTANEOUS VASCULITIS [None]
  - PURPURA [None]
  - PYREXIA [None]
